FAERS Safety Report 7797854-8 (Version None)
Quarter: 2011Q4

REPORT INFORMATION
  Report Type: 
  Country: None (occurrence: None)
  Receive Date: 20111005
  Receipt Date: 20111003
  Transmission Date: 20120403
  Serious: Yes (Hospitalization)
  Sender: FDA-Public Use
  Company Number: FR-BRISTOL-MYERS SQUIBB COMPANY-16093569

PATIENT
  Age: 79 Year
  Sex: Male

DRUGS (1)
  1. IPILIMUMAB [Suspect]
     Indication: MALIGNANT MELANOMA
     Dosage: PRODUCT STRENGTH IS 10MG/KG 2ND COURSE ON 22AUG11
     Route: 042
     Dates: start: 20110801

REACTIONS (7)
  - NAUSEA [None]
  - VOMITING [None]
  - PYREXIA [None]
  - DECREASED APPETITE [None]
  - DIARRHOEA [None]
  - DEHYDRATION [None]
  - GASTROINTESTINAL TOXICITY [None]
